FAERS Safety Report 9732074 (Version 1)
Quarter: 2013Q4

REPORT INFORMATION
  Report Type: Spontaneous
  Country: GB (occurrence: GB)
  Receive Date: 20131205
  Receipt Date: 20131205
  Transmission Date: 20140711
  Serious: Yes (Other)
  Sender: FDA-Public Use
  Company Number: GB-MYLANLABS-2013S1026329

PATIENT
  Age: 73 Year
  Sex: Female
  Weight: 69.85 kg

DRUGS (1)
  1. LANSOPRAZOLE [Suspect]
     Indication: GASTROOESOPHAGEAL REFLUX DISEASE
     Route: 048
     Dates: start: 2011, end: 201207

REACTIONS (3)
  - Panic attack [Unknown]
  - Tachycardia paroxysmal [Recovered/Resolved]
  - Asthenia [Unknown]
